FAERS Safety Report 17855631 (Version 1)
Quarter: 2020Q2

REPORT INFORMATION
  Report Type: Spontaneous
  Country: US (occurrence: US)
  Receive Date: 20200603
  Receipt Date: 20200603
  Transmission Date: 20200714
  Serious: Yes (Other)
  Sender: FDA-Public Use
  Company Number: US-PFIZER INC-2018417082

PATIENT
  Age: 69 Year
  Sex: Male

DRUGS (4)
  1. OXYCODONE [Concomitant]
     Active Substance: OXYCODONE
     Dosage: 15 MG, AS NEEDED (TAKE 1 TABLET(S) 5 TIMES DAY BY ORAL ROUTE AS NEEDED)
     Route: 048
  2. LYRICA [Suspect]
     Active Substance: PREGABALIN
     Dosage: UNK, TWICE A DAY
     Route: 048
  3. LYRICA [Suspect]
     Active Substance: PREGABALIN
     Dosage: 100 MG, THREE TIMES A DAY
  4. LYRICA [Suspect]
     Active Substance: PREGABALIN
     Indication: PAIN
     Dosage: UNK, ONCE A DAY
     Route: 048

REACTIONS (3)
  - Type 1 diabetes mellitus [Unknown]
  - Accident [Unknown]
  - Injury [Unknown]
